FAERS Safety Report 16671899 (Version 1)
Quarter: 2019Q3

REPORT INFORMATION
  Report Type: Report from Study
  Country: US (occurrence: US)
  Receive Date: 20190806
  Receipt Date: 20190806
  Transmission Date: 20191004
  Serious: Yes (Other)
  Sender: FDA-Public Use
  Company Number: US-BIOGEN-2019BI00769666

PATIENT
  Sex: Female

DRUGS (1)
  1. TYSABRI [Suspect]
     Active Substance: NATALIZUMAB
     Indication: MULTIPLE SCLEROSIS
     Route: 065
     Dates: start: 20180618

REACTIONS (5)
  - Memory impairment [Unknown]
  - Depression [Unknown]
  - Migraine [Unknown]
  - Middle insomnia [Unknown]
  - Seizure [Unknown]

NARRATIVE: CASE EVENT DATE: 2019
